FAERS Safety Report 24808613 (Version 1)
Quarter: 2025Q1

REPORT INFORMATION
  Report Type: Spontaneous
  Country: SI (occurrence: SI)
  Receive Date: 20250106
  Receipt Date: 20250106
  Transmission Date: 20250409
  Serious: Yes (Hospitalization)
  Sender: SAMSUNG BIOEPIS
  Company Number: SI-SAMSUNG BIOEPIS-SB-2024-39683

PATIENT
  Age: 34 Year
  Sex: Female
  Weight: 93 kg

DRUGS (2)
  1. ADALIMUMAB [Suspect]
     Active Substance: ADALIMUMAB
     Indication: Hidradenitis
  2. ETONOGESTREL AND ETHINYL ESTRADIOL [Concomitant]
     Active Substance: ETHINYL ESTRADIOL\ETONOGESTREL
     Indication: Contraception

REACTIONS (3)
  - Atelectasis [Unknown]
  - Hepatic steatosis [Unknown]
  - Pancreatitis [Unknown]
